FAERS Safety Report 15328803 (Version 2)
Quarter: 2018Q3

REPORT INFORMATION
  Report Type: Spontaneous
  Country: DE (occurrence: DE)
  Receive Date: 20180829
  Receipt Date: 20180905
  Transmission Date: 20181010
  Serious: Yes (Hospitalization, Other)
  Sender: FDA-Public Use
  Company Number: DE-ASTRAZENECA-2018SF06588

PATIENT
  Age: 65 Year
  Sex: Female

DRUGS (6)
  1. RAMIPRIL. [Interacting]
     Active Substance: RAMIPRIL
     Indication: PRODUCT USED FOR UNKNOWN INDICATION
     Dosage: 1 A PHARMA (NON AZ)
     Route: 065
  2. ACETYLSALICYLIC ACID [Interacting]
     Active Substance: ASPIRIN
     Indication: PRODUCT USED FOR UNKNOWN INDICATION
     Dosage: 1 A PHARMA (NON AZ)
     Route: 065
  3. VALSARTAN. [Interacting]
     Active Substance: VALSARTAN
     Indication: PRODUCT USED FOR UNKNOWN INDICATION
     Dosage: DURA
     Route: 065
     Dates: start: 201803
  4. BRILIQUE [Suspect]
     Active Substance: TICAGRELOR
     Indication: PRODUCT USED FOR UNKNOWN INDICATION
     Dosage: 90 MG, BID
     Route: 048
  5. ATORVASTATIN [Interacting]
     Active Substance: ATORVASTATIN
     Indication: PRODUCT USED FOR UNKNOWN INDICATION
     Dosage: BASICS
     Route: 065
  6. BISOPROLOL FUMARATE. [Interacting]
     Active Substance: BISOPROLOL FUMARATE
     Indication: PRODUCT USED FOR UNKNOWN INDICATION
     Dosage: DEXCEL
     Route: 065

REACTIONS (12)
  - Headache [Unknown]
  - Abdominal pain upper [Unknown]
  - Overdose [Unknown]
  - Cough [Unknown]
  - Fatigue [Unknown]
  - Mucosal dryness [Unknown]
  - Contusion [Unknown]
  - Gingival ulceration [Unknown]
  - Drug interaction [Unknown]
  - Renal cell carcinoma [Unknown]
  - Myocardial infarction [Unknown]
  - Nausea [Unknown]

NARRATIVE: CASE EVENT DATE: 2015
